FAERS Safety Report 20610043 (Version 2)
Quarter: 2022Q2

REPORT INFORMATION
  Report Type: Spontaneous
  Country: US (occurrence: US)
  Receive Date: 20220318
  Receipt Date: 20220607
  Transmission Date: 20220721
  Serious: Yes (Other)
  Sender: FDA-Public Use
  Company Number: US-SA-SAC20220315001662

PATIENT
  Age: 66 Year
  Sex: Female

DRUGS (1)
  1. ZANTAC [Suspect]
     Active Substance: RANITIDINE HYDROCHLORIDE
     Indication: Dyspepsia
     Dosage: 75 MG (FREQUENCY: OCCASIONAL)
     Route: 065
     Dates: start: 201001, end: 202002

REACTIONS (2)
  - Renal cancer [Unknown]
  - Hepatic cancer stage III [Unknown]

NARRATIVE: CASE EVENT DATE: 20170501
